FAERS Safety Report 10479438 (Version 6)
Quarter: 2015Q2

REPORT INFORMATION
  Report Type: Spontaneous
  Country: US (occurrence: US)
  Receive Date: 20140926
  Receipt Date: 20150429
  Transmission Date: 20150821
  Serious: Yes (Hospitalization)
  Sender: FDA-Public Use
  Company Number: US-ACTELION-A-US2014-105512

PATIENT
  Age: 70 Year
  Sex: Male

DRUGS (3)
  1. ASPIRIN. [Concomitant]
     Active Substance: ASPIRIN
  2. CIALIS [Concomitant]
     Active Substance: TADALAFIL
  3. VELETRI [Suspect]
     Active Substance: EPOPROSTENOL
     Indication: PULMONARY HYPERTENSION
     Dosage: 21.4 NG/KG, PER MIN
     Route: 042
     Dates: start: 20120229

REACTIONS (8)
  - Staphylococcal bacteraemia [Unknown]
  - Sepsis [Unknown]
  - Device related infection [Unknown]
  - Pneumonia [Unknown]
  - Dyspnoea [Unknown]
  - Catheter placement [Unknown]
  - Rash [Unknown]
  - Pyrexia [Unknown]

NARRATIVE: CASE EVENT DATE: 20150313
